FAERS Safety Report 9056143 (Version 8)
Quarter: 2019Q4

REPORT INFORMATION
  Report Type: Report from Study
  Country: CA (occurrence: CA)
  Receive Date: 20130205
  Receipt Date: 20191002
  Transmission Date: 20200122
  Serious: No
  Sender: FDA-Public Use
  Company Number: PHHY2013CA010360

PATIENT
  Age: 63 Year
  Sex: Male

DRUGS (7)
  1. CALCIUM [Concomitant]
     Active Substance: CALCIUM
     Dosage: UNK UKN, UNK
  2. VITAMIN D [Concomitant]
     Active Substance: VITAMIN D NOS
  3. GLEEVEC [Suspect]
     Active Substance: IMATINIB MESYLATE
     Dosage: 400 MG, QD
     Route: 048
     Dates: start: 20190923
  4. FLOMAX [Concomitant]
     Active Substance: TAMSULOSIN HYDROCHLORIDE
     Indication: BENIGN PROSTATIC HYPERPLASIA
     Dosage: UNK UKN, UNK
  5. VITAMIN B12 [Concomitant]
     Active Substance: CYANOCOBALAMIN
  6. PROSCAR [Concomitant]
     Active Substance: FINASTERIDE
     Dosage: UNK UKN, UNK
  7. GLEEVEC [Suspect]
     Active Substance: IMATINIB MESYLATE
     Indication: GASTROINTESTINAL STROMAL TUMOUR
     Dosage: 400 MG, QD
     Route: 048
     Dates: start: 201112, end: 201412

REACTIONS (13)
  - Increased tendency to bruise [Unknown]
  - Blood pressure decreased [Recovering/Resolving]
  - Dizziness [Unknown]
  - Skin lesion [Unknown]
  - Secretion discharge [Unknown]
  - Skin irritation [Unknown]
  - Wound secretion [Unknown]
  - Scab [Unknown]
  - Hyperaesthesia [Unknown]
  - Skin burning sensation [Unknown]
  - Nasopharyngitis [Unknown]
  - Skin disorder [Unknown]
  - Nasal congestion [Unknown]

NARRATIVE: CASE EVENT DATE: 20140117
